FAERS Safety Report 24548075 (Version 1)
Quarter: 2024Q4

REPORT INFORMATION
  Report Type: Spontaneous
  Country: DE (occurrence: DE)
  Receive Date: 20241025
  Receipt Date: 20241025
  Transmission Date: 20250114
  Serious: No
  Sender: ALKEM
  Company Number: DE-ALKEM LABORATORIES LIMITED-DE-ALKEM-2024-17487

PATIENT
  Age: 50 Year
  Sex: Male

DRUGS (8)
  1. CLOBAZAM [Interacting]
     Active Substance: CLOBAZAM
     Indication: Partial seizures
     Dosage: 30 MILLIGRAM, QD
     Route: 065
  2. CLOBAZAM [Interacting]
     Active Substance: CLOBAZAM
     Indication: Strabismus
     Dosage: UNK (DOSE DECREASED)
     Route: 065
  3. CENOBAMATE [Interacting]
     Active Substance: CENOBAMATE
     Indication: Partial seizures
     Dosage: 200 MILLIGRAM (AT THE TIME OF EXAMINATION)
     Route: 065
  4. CENOBAMATE [Interacting]
     Active Substance: CENOBAMATE
     Indication: Strabismus
  5. RUFINAMIDE [Concomitant]
     Active Substance: RUFINAMIDE
     Indication: Partial seizures
     Dosage: UNK
     Route: 065
  6. RUFINAMIDE [Concomitant]
     Active Substance: RUFINAMIDE
     Indication: Strabismus
  7. VALPROATE [Concomitant]
     Active Substance: VALPROIC ACID
     Indication: Partial seizures
     Dosage: UNK
     Route: 065
  8. VALPROATE [Concomitant]
     Active Substance: VALPROIC ACID
     Indication: Strabismus

REACTIONS (3)
  - Drug level increased [Unknown]
  - Drug interaction [Unknown]
  - Fatigue [Recovering/Resolving]
